FAERS Safety Report 9669107 (Version 2)
Quarter: 2013Q4

REPORT INFORMATION
  Report Type: Report from Study
  Country: TR (occurrence: TR)
  Receive Date: 20131105
  Receipt Date: 20131202
  Transmission Date: 20140711
  Serious: Yes (Hospitalization)
  Sender: FDA-Public Use
  Company Number: TR-ABBVIE-13P-161-1165944-00

PATIENT
  Age: 66 Year
  Sex: Female
  Weight: 79 kg

DRUGS (6)
  1. HUMIRA [Suspect]
     Indication: ANKYLOSING SPONDYLITIS
     Route: 058
     Dates: start: 20130911, end: 20131031
  2. HUMIRA [Suspect]
     Dates: start: 20131106
  3. CALCITRIOL [Concomitant]
     Indication: MINERAL SUPPLEMENTATION
     Dosage: 0,5 MG X 1
     Route: 048
     Dates: start: 19830101
  4. IPRATROPIUM BROMIDE [Concomitant]
     Indication: ASTHMA
     Dosage: 2ML/500MCG
     Route: 055
     Dates: start: 20130930
  5. SOLIFENACIN [Concomitant]
     Indication: URINARY TRACT DISORDER
     Dosage: 5MG X 1
     Route: 048
     Dates: start: 20130930
  6. PREMIUM PLUS [Concomitant]
     Indication: HYPERTENSION
     Dosage: 160/12,5MG
     Route: 048
     Dates: start: 19980101

REACTIONS (3)
  - Generalised oedema [Recovered/Resolved]
  - Generalised erythema [Recovered/Resolved]
  - Pain [Recovered/Resolved]
